FAERS Safety Report 21839470 (Version 2)
Quarter: 2023Q1

REPORT INFORMATION
  Report Type: Spontaneous
  Country: US (occurrence: US)
  Receive Date: 20230109
  Receipt Date: 20230330
  Transmission Date: 20230417
  Serious: No
  Sender: FDA-Public Use
  Company Number: US-KARYOPHARM-2022KPT001503

PATIENT

DRUGS (11)
  1. XPOVIO [Suspect]
     Active Substance: SELINEXOR
     Indication: Plasma cell myeloma
     Dosage: 100 MG, WEEKLY
     Route: 048
     Dates: start: 20221110, end: 202211
  2. XPOVIO [Suspect]
     Active Substance: SELINEXOR
     Dosage: 100 MG, WEEKLY
     Route: 048
     Dates: start: 202211, end: 202212
  3. XPOVIO [Suspect]
     Active Substance: SELINEXOR
     Dosage: 100 MG, WEEKLY
     Route: 048
     Dates: start: 202212
  4. PROCHLORPERAZINE [Concomitant]
     Active Substance: PROCHLORPERAZINE
  5. ONDANSETRON [Concomitant]
     Active Substance: ONDANSETRON
  6. MORPHINE [Concomitant]
     Active Substance: MORPHINE
  7. LORAZEPAM [Concomitant]
     Active Substance: LORAZEPAM
  8. LISINOPRIL [Concomitant]
     Active Substance: LISINOPRIL
  9. HYDROMORPHONE [Concomitant]
     Active Substance: HYDROMORPHONE
  10. DEXAMETHASONE [Concomitant]
     Active Substance: DEXAMETHASONE
  11. ACYCLOVIR ABBOTT VIAL [Concomitant]

REACTIONS (6)
  - Nasopharyngitis [Recovered/Resolved]
  - Pruritus [Recovered/Resolved]
  - Influenza [Recovered/Resolved]
  - Nausea [Unknown]
  - Vomiting [Unknown]
  - Dizziness [Unknown]

NARRATIVE: CASE EVENT DATE: 20221101
